FAERS Safety Report 17865535 (Version 1)
Quarter: 2020Q2

REPORT INFORMATION
  Report Type: Report from Study
  Country: ES (occurrence: ES)
  Receive Date: 20200605
  Receipt Date: 20200605
  Transmission Date: 20200714
  Serious: Yes (Death, Hospitalization)
  Sender: FDA-Public Use
  Company Number: ES-TEVA-2020-ES-1243844

PATIENT
  Age: 59 Year
  Sex: Male

DRUGS (6)
  1. FUROSEMIDA (1615A) [Interacting]
     Active Substance: FUROSEMIDE
     Dosage: 60 MG
     Route: 048
     Dates: start: 20170321, end: 20170403
  2. ENTECAVIR (8043A) [Concomitant]
     Dosage: 0.5 MG
     Route: 048
     Dates: start: 20170223, end: 20170410
  3. FUROSEMIDA (1615A) [Concomitant]
     Active Substance: FUROSEMIDE
     Dosage: 40 MG
     Route: 048
     Dates: start: 20170308, end: 20170320
  4. ESPIRONOLACTONA (326A) [Concomitant]
     Active Substance: SPIRONOLACTONE
     Indication: ASCITES
     Dosage: 100 MG
     Route: 048
     Dates: start: 20170308, end: 20170326
  5. ESPIRONOLACTONA (326A) [Concomitant]
     Active Substance: SPIRONOLACTONE
     Dosage: 150 MG
     Route: 048
     Dates: start: 20170327, end: 20170403
  6. IBUPROFENO (1769A) [Suspect]
     Active Substance: IBUPROFEN
     Route: 048
     Dates: start: 201703

REACTIONS (3)
  - Drug interaction [Unknown]
  - Acute kidney injury [Recovered/Resolved]
  - Hyperkalaemia [Recovered/Resolved]

NARRATIVE: CASE EVENT DATE: 201704
